FAERS Safety Report 15321119 (Version 1)
Quarter: 2018Q4

REPORT INFORMATION
  Report Type: Spontaneous
  Country: ZA (occurrence: ZA)
  Receive Date: 20180827
  Receipt Date: 20180827
  Transmission Date: 20190204
  Serious: Yes (Death, Other)
  Sender: FDA-Public Use
  Company Number: ZA-PFIZER INC-2018342947

PATIENT
  Age: 75 Year
  Sex: Female

DRUGS (7)
  1. ZOPICLONE SANDOZ [Suspect]
     Active Substance: ZOPICLONE
     Dosage: 7.5 MG, UNK
  2. DAZIT [Suspect]
     Active Substance: DESLORATADINE
     Dosage: 5 MG, UNK
  3. ADVANTAN [Suspect]
     Active Substance: METHYLPREDNISOLONE ACEPONATE
     Dosage: 1 MG, UNK
  4. ECOTRIN [Suspect]
     Active Substance: ASPIRIN
     Dosage: 81 MG, UNK
  5. VICTOZA [Suspect]
     Active Substance: LIRAGLUTIDE
  6. GLUCOPHAGE XR [Suspect]
     Active Substance: METFORMIN HYDROCHLORIDE
     Dosage: 500 MG, UNK
  7. SALAZOPYRIN [Suspect]
     Active Substance: SULFASALAZINE
     Dosage: 500 MG, UNK

REACTIONS (1)
  - Death [Fatal]
